FAERS Safety Report 8611573-7 (Version None)
Quarter: 2012Q3

REPORT INFORMATION
  Report Type: 
  Country: None (occurrence: None)
  Receive Date: 20120822
  Receipt Date: 20120815
  Transmission Date: 20120928
  Serious: Yes (Other)
  Sender: FDA-Public Use
  Company Number: PHFR2012GB003324

PATIENT
  Sex: Male
  Weight: 73 kg

DRUGS (8)
  1. CLOZARIL [Suspect]
     Dosage: UNK UKN, UNK
  2. ATENOLOL [Concomitant]
     Indication: SALIVARY HYPERSECRETION
     Dosage: 25 MG, QD
  3. CLOZARIL [Suspect]
     Dosage: UNK UKN, UNK
     Route: 048
     Dates: start: 20120110
  4. QUETIAPINE [Concomitant]
     Dosage: UNK UKN, UNK
  5. OMEPRAZOLE [Concomitant]
     Indication: DYSPEPSIA
     Dosage: 40 MG, UNK
     Route: 048
  6. LACTULOSE [Concomitant]
     Indication: CONSTIPATION
     Dosage: 30 ML, QD
  7. FERROUS SULFATE TAB [Concomitant]
     Indication: HAEMOGLOBIN DECREASED
     Dosage: 200 MG, UNK
     Route: 048
  8. HYOSCINE HYDROBROMIDE [Concomitant]
     Indication: SALIVARY HYPERSECRETION
     Dosage: 600 MG, QD
     Route: 048

REACTIONS (3)
  - WHITE BLOOD CELL COUNT DECREASED [None]
  - NEUTROPHIL COUNT DECREASED [None]
  - MENTAL IMPAIRMENT [None]
